FAERS Safety Report 6307845-1 (Version None)
Quarter: 2009Q3

REPORT INFORMATION
  Report Type: 
  Country: None (occurrence: None)
  Receive Date: 20090810
  Receipt Date: 20090723
  Transmission Date: 20100115
  Serious: Yes (Hospitalization, Other)
  Sender: FDA-Public Use
  Company Number: DSA_34038_2009

PATIENT
  Sex: Female

DRUGS (3)
  1. CARDIZEM [Suspect]
     Indication: HYPERTENSION
     Dosage: ONE-HALF TABLET ORAL
     Route: 048
     Dates: start: 20040601, end: 20040601
  2. LEXAPRO [Suspect]
     Indication: DEPRESSION
     Dosage: DF ORAL
     Route: 048
     Dates: start: 20040101, end: 20040101
  3. REMERON [Suspect]
     Indication: DRUG USE FOR UNKNOWN INDICATION
     Dosage: DF ORAL
     Route: 048

REACTIONS (5)
  - GRAND MAL CONVULSION [None]
  - HYPERSENSITIVITY [None]
  - HYPERTENSION [None]
  - LOSS OF CONSCIOUSNESS [None]
  - SWELLING [None]
